FAERS Safety Report 4842041-6 (Version None)
Quarter: 2005Q4

REPORT INFORMATION
  Report Type: 
  Country: None (occurrence: None)
  Receive Date: 20051130
  Receipt Date: 20051116
  Transmission Date: 20060501
  Serious: Yes (Other)
  Sender: FDA-Public Use
  Company Number: JP-JNJFOC-20051104487

PATIENT
  Age: 46 Year
  Sex: Male

DRUGS (7)
  1. NEOPERIDOL [Suspect]
     Indication: DRUG USE FOR UNKNOWN INDICATION
  2. HALOPERIDOL [Suspect]
     Indication: DRUG USE FOR UNKNOWN INDICATION
     Route: 048
  3. QUAZEPAM [Concomitant]
     Route: 048
  4. ZOTEPINE [Concomitant]
     Route: 048
  5. ZOTEPINE [Concomitant]
     Route: 048
  6. PROMETHAZINE HCL [Concomitant]
     Route: 048
  7. DISULFIRAM [Concomitant]
     Route: 048

REACTIONS (5)
  - BRADYCARDIA [None]
  - DYSPHAGIA [None]
  - GAIT DISTURBANCE [None]
  - LIVER DISORDER [None]
  - SALIVARY HYPERSECRETION [None]
